FAERS Safety Report 24729891 (Version 1)
Quarter: 2024Q4

REPORT INFORMATION
  Report Type: Spontaneous
  Country: US (occurrence: US)
  Receive Date: 20241213
  Receipt Date: 20241213
  Transmission Date: 20250114
  Serious: Yes (Hospitalization, Other)
  Sender: BRISTOL-MYERS SQUIBB COMPANY
  Company Number: US-BRISTOL-MYERS SQUIBB COMPANY-2024-188319

PATIENT
  Age: 71 Year
  Sex: Female
  Weight: 96.98 kg

DRUGS (12)
  1. REVLIMID [Suspect]
     Active Substance: LENALIDOMIDE
     Indication: Plasma cell myeloma
     Route: 048
     Dates: end: 20240727
  2. ATORVASTATIN [Concomitant]
     Active Substance: ATORVASTATIN
  3. CYCLOBENZAPRINE [Concomitant]
     Active Substance: CYCLOBENZAPRINE
  4. METHOCARBAMOL [Concomitant]
     Active Substance: METHOCARBAMOL
  5. NORVASC [Concomitant]
     Active Substance: AMLODIPINE BESYLATE
  6. VENTOLIN [Concomitant]
     Active Substance: ALBUTEROL SULFATE
  7. TRAMADOL [Concomitant]
     Active Substance: TRAMADOL
  8. ONDANSETRON [Concomitant]
     Active Substance: ONDANSETRON
  9. ACYCLOVIR [Concomitant]
     Active Substance: ACYCLOVIR
  10. DEXAMETHASONE [Concomitant]
     Active Substance: DEXAMETHASONE
  11. SINGULAIR [Concomitant]
     Active Substance: MONTELUKAST SODIUM
  12. KCL [Concomitant]
     Active Substance: POTASSIUM CHLORIDE

REACTIONS (1)
  - Haemoglobin decreased [Recovering/Resolving]

NARRATIVE: CASE EVENT DATE: 20240101
